FAERS Safety Report 8816404 (Version 1)
Quarter: 2012Q4

REPORT INFORMATION
  Report Type: Spontaneous
  Country: US (occurrence: None)
  Receive Date: 20120928
  Receipt Date: 20120928
  Transmission Date: 20130627
  Serious: Yes (Hospitalization)
  Sender: FDA-Public Use
  Company Number: None

PATIENT
  Age: 41 Year
  Sex: Female
  Weight: 56.3 kg

DRUGS (2)
  1. SEPTRA DS [Suspect]
     Indication: CELLULITIS
     Dosage: 2TABS BID PO 
RECENT WITH DOSE INCREASE
     Route: 048
  2. SEPTRA DS [Suspect]
     Indication: SPIDER BITE
     Dosage: 2TABS BID PO 
RECENT WITH DOSE INCREASE
     Route: 048

REACTIONS (2)
  - Cellulitis [None]
  - Drug hypersensitivity [None]
